FAERS Safety Report 4426769-8 (Version None)
Quarter: 2004Q3

REPORT INFORMATION
  Report Type: 
  Country: None (occurrence: None)
  Receive Date: 20040812
  Receipt Date: 20040812
  Transmission Date: 20050211
  Serious: Yes (Disabling)
  Sender: FDA-Public Use
  Company Number: None

PATIENT
  Age: 39 Year
  Sex: Female
  Weight: 62.5964 kg

DRUGS (3)
  1. BUSPAR [Suspect]
     Indication: ANXIETY
     Dosage: 2.5 MG-10M   ORAL   AURICULAR
     Route: 001
     Dates: start: 20020110, end: 20030615
  2. ATIVAN [Concomitant]
  3. DENTAL ANAESTHETIC [Concomitant]

REACTIONS (11)
  - ANXIETY [None]
  - BRADYPHRENIA [None]
  - DECREASED ACTIVITY [None]
  - DEPENDENCE [None]
  - DERMATITIS EXFOLIATIVE [None]
  - DIFFICULTY IN WALKING [None]
  - PAIN [None]
  - SPEECH DISORDER [None]
  - SUICIDAL IDEATION [None]
  - TARDIVE DYSKINESIA [None]
  - THINKING ABNORMAL [None]
